FAERS Safety Report 16132326 (Version 1)
Quarter: 2019Q1

REPORT INFORMATION
  Report Type: Report from Study
  Country: CA (occurrence: CA)
  Receive Date: 20190329
  Receipt Date: 20190329
  Transmission Date: 20190418
  Serious: Yes (Hospitalization, Other)
  Sender: FDA-Public Use
  Company Number: CA-BRISTOL-MYERS SQUIBB COMPANY-BMS-2018-090070

PATIENT
  Age: 80 Year
  Sex: Female

DRUGS (1)
  1. ABATACEPT [Suspect]
     Active Substance: ABATACEPT
     Indication: RHEUMATOID ARTHRITIS
     Dosage: 500 MG, Q4WK
     Route: 042
     Dates: start: 20180914

REACTIONS (7)
  - Dyspnoea [Unknown]
  - Malaise [Unknown]
  - Dry skin [Unknown]
  - Blister [Unknown]
  - Chest pain [Unknown]
  - Pruritus [Unknown]
  - Infected skin ulcer [Unknown]

NARRATIVE: CASE EVENT DATE: 20180921
